FAERS Safety Report 8103305-6 (Version None)
Quarter: 2012Q1

REPORT INFORMATION
  Report Type: 
  Country: None (occurrence: None)
  Receive Date: 20120127
  Receipt Date: 20120119
  Transmission Date: 20120608
  Serious: Yes (Death, Congenital Anomaly)
  Sender: FDA-Public Use
  Company Number: 1000027276

PATIENT

DRUGS (2)
  1. LEXAPRO [Suspect]
     Indication: OBSESSIVE-COMPULSIVE DISORDER
     Dosage: 20 MG (20 MG,1 IN 1 D), TRANSPLACENTAL
     Route: 064
     Dates: start: 20110101, end: 20111201
  2. LEXAPRO [Suspect]
     Indication: DEPRESSION
     Dosage: 20 MG (20 MG,1 IN 1 D), TRANSPLACENTAL
     Route: 064
     Dates: start: 20110101, end: 20111201

REACTIONS (3)
  - SPINA BIFIDA [None]
  - ABORTION INDUCED [None]
  - MATERNAL DRUGS AFFECTING FOETUS [None]
